FAERS Safety Report 9100318 (Version 1)
Quarter: 2013Q1

REPORT INFORMATION
  Report Type: Report from Study
  Country: DE (occurrence: DE)
  Receive Date: 20130215
  Receipt Date: 20130215
  Transmission Date: 20140127
  Serious: Yes (Hospitalization)
  Sender: FDA-Public Use
  Company Number: DE-ABBOTT-13P-062-1049701-00

PATIENT
  Age: 53 Year
  Sex: Male
  Weight: 96.5 kg

DRUGS (8)
  1. HUMIRA [Suspect]
     Indication: CROHN^S DISEASE
     Route: 058
     Dates: start: 20110825, end: 20111005
  2. HUMIRA [Suspect]
     Route: 058
     Dates: start: 20111006, end: 20120903
  3. HUMIRA [Suspect]
     Route: 058
     Dates: start: 20120904
  4. METOPROLOL [Suspect]
     Indication: HYPERTENSION
     Dates: end: 201212
  5. AZATHIOPRINE [Concomitant]
     Indication: CROHN^S DISEASE
     Dates: start: 201107
  6. PREDNISOLONE [Concomitant]
     Indication: CROHN^S DISEASE
     Dates: start: 201107
  7. RAMIPRIL [Concomitant]
     Indication: HYPERTENSION
  8. ANALGESIC [Concomitant]
     Indication: PRODUCT USED FOR UNKNOWN INDICATION

REACTIONS (6)
  - Ileal stenosis [Recovered/Resolved]
  - Ileitis [Recovered/Resolved]
  - Intestinal obstruction [Recovered/Resolved]
  - Constipation [Recovered/Resolved]
  - Hypotension [Recovered/Resolved]
  - Abdominal adhesions [Unknown]
